FAERS Safety Report 4587327-8 (Version None)
Quarter: 2005Q1

REPORT INFORMATION
  Report Type: 
  Country: None (occurrence: None)
  Receive Date: 20050215
  Receipt Date: 20050204
  Transmission Date: 20050727
  Serious: No
  Sender: FDA-Public Use
  Company Number: 2005CG00304

PATIENT
  Age: 80 Year
  Sex: Male

DRUGS (9)
  1. NEXIUM [Suspect]
  2. ORAL ANTICOAGULANT [Suspect]
     Dates: end: 20050202
  3. ZESTORETIC [Concomitant]
  4. DIAMICRON [Concomitant]
  5. PRAVASTATIN [Concomitant]
  6. ZYLORIC ^GLAXO WELLCOME^ [Concomitant]
  7. DAFALGAN [Concomitant]
  8. PRAXILENE [Concomitant]
  9. FONZYLANE [Concomitant]

REACTIONS (6)
  - BLOOD BILIRUBIN INCREASED [None]
  - DRUG INTERACTION [None]
  - GAMMA-GLUTAMYLTRANSFERASE INCREASED [None]
  - HAEMORRHAGE [None]
  - INTERNATIONAL NORMALISED RATIO INCREASED [None]
  - PROTHROMBIN LEVEL DECREASED [None]
